FAERS Safety Report 5420721-1 (Version None)
Quarter: 2007Q3

REPORT INFORMATION
  Report Type: 
  Country: None (occurrence: None)
  Receive Date: 20070821
  Receipt Date: 20070814
  Transmission Date: 20080115
  Serious: Yes (Hospitalization)
  Sender: FDA-Public Use
  Company Number: FR-AVENTIS-200712599FR

PATIENT
  Age: 42 Year
  Sex: Male

DRUGS (2)
  1. ARAVA [Suspect]
     Indication: POLYARTHRITIS
     Route: 048
     Dates: start: 20060715, end: 20061212
  2. CORTICOSTEROIDS [Concomitant]
     Dates: start: 20060101

REACTIONS (2)
  - CYTOLYTIC HEPATITIS [None]
  - TRANSAMINASES INCREASED [None]
